FAERS Safety Report 12276622 (Version 1)
Quarter: 2016Q2

REPORT INFORMATION
  Report Type: Spontaneous
  Country: CN (occurrence: CN)
  Receive Date: 20160418
  Receipt Date: 20160418
  Transmission Date: 20160815
  Serious: Yes (Hospitalization, Other)
  Sender: FDA-Public Use
  Company Number: CN-GLAXOSMITHKLINE-CN2016GSK050620

PATIENT
  Age: 9 Year
  Sex: Male
  Weight: 38 kg

DRUGS (2)
  1. PEVISONE [Concomitant]
     Active Substance: ECONAZOLE
  2. BACTROBAN [Suspect]
     Active Substance: MUPIROCIN\MUPIROCIN CALCIUM
     Indication: PEMPHIGUS
     Dosage: 1 G, QD
     Route: 061
     Dates: start: 20060101, end: 20150724

REACTIONS (4)
  - Hypercorticoidism [Not Recovered/Not Resolved]
  - Blood corticotrophin abnormal [Unknown]
  - Blood cortisol abnormal [Unknown]
  - Cushing^s syndrome [Unknown]

NARRATIVE: CASE EVENT DATE: 20150724
